FAERS Safety Report 9433565 (Version 2)
Quarter: 2013Q3

REPORT INFORMATION
  Report Type: Spontaneous
  Country: DE (occurrence: DE)
  Receive Date: 20130731
  Receipt Date: 20130814
  Transmission Date: 20140515
  Serious: Yes (Life-Threatening, Hospitalization, Disabling)
  Sender: FDA-Public Use
  Company Number: DE-ACTAVIS-2013-13406

PATIENT
  Age: 71 Year
  Sex: Male
  Weight: 115 kg

DRUGS (4)
  1. DOCETAXEL (UNKNOWN) [Suspect]
     Indication: PROSTATE CANCER METASTATIC
     Dosage: UNK
     Route: 042
     Dates: start: 20130228, end: 20130228
  2. RAMILICH [Concomitant]
     Indication: HYPERTENSION
     Dosage: 2.5 MG, DAILY
     Route: 065
  3. ZOMETA [Concomitant]
     Indication: METASTASES TO BONE
     Dosage: 4MG
     Route: 042
  4. LEUPRORELIN ACETATE [Concomitant]
     Indication: PROSTATE CANCER
     Route: 058

REACTIONS (4)
  - Cerebral infarction [Not Recovered/Not Resolved]
  - Dysarthria [Not Recovered/Not Resolved]
  - Hemiparesis [Not Recovered/Not Resolved]
  - Neurologic neglect syndrome [Not Recovered/Not Resolved]
